FAERS Safety Report 22931926 (Version 2)
Quarter: 2023Q4

REPORT INFORMATION
  Report Type: Report from Study
  Country: JP (occurrence: JP)
  Receive Date: 20230912
  Receipt Date: 20231031
  Transmission Date: 20240110
  Serious: Yes (Death)
  Sender: FDA-Public Use
  Company Number: JP-ABBVIE-22K-087-4428632-00

PATIENT
  Age: 78 Year
  Sex: Female
  Weight: 54 kg

DRUGS (17)
  1. RINVOQ [Suspect]
     Active Substance: UPADACITINIB
     Indication: Rheumatoid arthritis
     Dosage: 15 MILLIGRAM
     Route: 048
     Dates: start: 20210507, end: 20220112
  2. SULFASALAZINE [Concomitant]
     Active Substance: SULFASALAZINE
     Indication: Rheumatoid arthritis
     Dosage: 1000 MILLIGRAM
  3. Nupurin [Concomitant]
     Indication: Rheumatoid arthritis
     Dosage: TIME INTERVAL: 0.33333333 WEEKS
     Dates: end: 20210602
  4. Nupurin [Concomitant]
     Indication: Rheumatoid arthritis
  5. PREDNISOLONE [Concomitant]
     Active Substance: PREDNISOLONE
     Indication: Rheumatoid arthritis
  6. BISOPROLOL FUMARATE [Concomitant]
     Active Substance: BISOPROLOL FUMARATE
     Indication: Product used for unknown indication
     Dosage: 5 MG
     Route: 048
  7. FEBUXOSTAT EG [Concomitant]
     Indication: Product used for unknown indication
     Dosage: 10 MG
     Route: 048
  8. Vildagliptin/metformin teva [Concomitant]
     Indication: Product used for unknown indication
     Dosage: 50 MILLIGRAM
     Route: 048
  9. RABEPRAZOLE SODIUM/TEVA [Concomitant]
     Indication: Product used for unknown indication
     Dosage: 10 MILLIGRAM
     Route: 048
  10. PITAVASTATIN CALCIUM [Concomitant]
     Active Substance: PITAVASTATIN CALCIUM
     Indication: Product used for unknown indication
     Dosage: 1 MG
     Route: 048
  11. Ilyangbio clopidogrel sulfate [Concomitant]
     Indication: Product used for unknown indication
     Dosage: 75 MG
     Route: 048
  12. AMBROXOL HYDROCHLORIDE AND GLUCOSE [Concomitant]
     Indication: Product used for unknown indication
     Dosage: 45 MG
     Route: 048
  13. PRANLUKAST DK [Concomitant]
     Indication: Product used for unknown indication
     Dosage: 225 MILLIGRAM
     Route: 048
  14. DLI-DEXTROMETHORPHAN HYDROBROMIDE [Concomitant]
     Indication: Product used for unknown indication
     Dosage: 15 MILLIGRAM
     Route: 048
  15. MINODRONIC ACID [Concomitant]
     Active Substance: MINODRONIC ACID
     Indication: Product used for unknown indication
     Dosage: 50MG/MONTH
     Route: 048
  16. PREDNISOLONE [Concomitant]
     Active Substance: PREDNISOLONE
     Indication: Rheumatoid arthritis
     Dosage: 8 MILLIGRAM
  17. MITIGLINIDE CALCIUM ANHYDROUS [Concomitant]
     Active Substance: MITIGLINIDE CALCIUM ANHYDROUS
     Indication: Product used for unknown indication
     Dosage: 10 MILLIGRAM
     Route: 048

REACTIONS (2)
  - Bacteraemia [Fatal]
  - Therapeutic product effect incomplete [Unknown]

NARRATIVE: CASE EVENT DATE: 20230216
